FAERS Safety Report 7267040-9 (Version None)
Quarter: 2011Q1

REPORT INFORMATION
  Report Type: 
  Country: None (occurrence: None)
  Receive Date: 20110201
  Receipt Date: 20110119
  Transmission Date: 20110831
  Serious: Yes (Other)
  Sender: FDA-Public Use
  Company Number: US-BAYER-2011-006883

PATIENT
  Sex: Male

DRUGS (1)
  1. AVELOX [Suspect]
     Indication: PNEUMONIA
     Dosage: 400 MG, UNK
     Route: 048
     Dates: start: 20110107, end: 20110114

REACTIONS (6)
  - DIZZINESS [None]
  - MALAISE [None]
  - LOSS OF CONSCIOUSNESS [None]
  - HYPERSOMNIA [None]
  - FATIGUE [None]
  - HAEMATEMESIS [None]
